FAERS Safety Report 9790125 (Version 1)
Quarter: 2013Q4

REPORT INFORMATION
  Report Type: Spontaneous
  Country: FR (occurrence: FR)
  Receive Date: 20131231
  Receipt Date: 20131231
  Transmission Date: 20140711
  Serious: Yes (Death, Hospitalization)
  Sender: FDA-Public Use
  Company Number: FR-ASTELLAS-2013EU011414

PATIENT
  Age: 26 Year
  Sex: Female

DRUGS (3)
  1. TACROLIMUS SYSTEMIC [Suspect]
     Indication: LUNG TRANSPLANT
     Dosage: 10 MG, UNKNOWN/D
     Route: 065
  2. MYCOPHENOLATE MOFETIL [Suspect]
     Indication: LUNG TRANSPLANT
     Dosage: 2 G, UNKNOWN/D
     Route: 065
  3. CORTICOSTEROID NOS [Suspect]
     Indication: LUNG TRANSPLANT
     Dosage: 9 MG, UNKNOWN/D
     Route: 065

REACTIONS (10)
  - Off label use [Unknown]
  - Pulmonary fibrosis [Fatal]
  - Viral sepsis [Fatal]
  - Renal failure [Fatal]
  - Cytomegalovirus infection [Fatal]
  - Hypoxia [Fatal]
  - Metabolic acidosis [Fatal]
  - Neutropenia [Unknown]
  - Anaemia [Unknown]
  - Bacteraemia [Unknown]
